FAERS Safety Report 7032478-1 (Version None)
Quarter: 2010Q4

REPORT INFORMATION
  Report Type: 
  Country: None (occurrence: None)
  Receive Date: 20101007
  Receipt Date: 20100603
  Transmission Date: 20110411
  Serious: Yes (Hospitalization)
  Sender: FDA-Public Use
  Company Number: US-BRISTOL-MYERS SQUIBB COMPANY-15146038

PATIENT
  Age: 66 Year
  Sex: Male
  Weight: 98 kg

DRUGS (21)
  1. CETUXIMAB [Suspect]
     Indication: NON-SMALL CELL LUNG CANCER
     Route: 042
     Dates: start: 20100513, end: 20100513
  2. CARBOPLATIN [Suspect]
     Indication: NON-SMALL CELL LUNG CANCER
     Route: 042
     Dates: start: 20100520, end: 20100520
  3. GEMCITABINE [Suspect]
     Indication: NON-SMALL CELL LUNG CANCER
     Route: 042
     Dates: start: 20100520, end: 20100527
  4. DIPHENHYDRAMINE HCL [Concomitant]
     Route: 065
     Dates: start: 20100513, end: 20100520
  5. NAPROSYN [Concomitant]
     Route: 048
     Dates: start: 20100521
  6. PALONOSETRON [Concomitant]
     Route: 065
     Dates: start: 20100513, end: 20100520
  7. PROCHLORPERAZINE MALEATE [Concomitant]
     Route: 048
     Dates: start: 20100520
  8. SODIUM CHLORIDE [Concomitant]
     Route: 065
     Dates: start: 20100513, end: 20100527
  9. ALBUTEROL [Concomitant]
     Route: 055
  10. AUGMENTIN '125' [Concomitant]
     Indication: BACTERAEMIA
     Route: 048
  11. ENALAPRIL MALEATE [Concomitant]
     Route: 048
     Dates: start: 20000601
  12. LANSOPRAZOLE [Concomitant]
     Route: 048
     Dates: start: 19950301
  13. METOPROLOL TARTRATE [Concomitant]
     Route: 048
     Dates: start: 20080601
  14. PREDNISONE [Concomitant]
     Dosage: AS DIRECTED
     Route: 048
  15. PREVACID [Concomitant]
     Route: 048
  16. PROPOXYPHENE HCL AND ACETAMINOPHEN [Concomitant]
     Indication: PAIN
     Dosage: 1DF-100-850 MG.AS NEEDED
     Route: 048
     Dates: start: 20100401
  17. ADRENALIN [Concomitant]
     Route: 030
     Dates: start: 20100513, end: 20100513
  18. DARBEPOETIN ALFA [Concomitant]
     Indication: ANAEMIA
     Route: 058
     Dates: start: 20100527, end: 20100527
  19. DEXAMETHASONE SODIUM PHOSPHATE [Concomitant]
     Route: 042
     Dates: start: 20100527, end: 20100527
  20. METHYLPREDNISOLONE ACETATE [Concomitant]
     Route: 042
     Dates: start: 20100513, end: 20100513
  21. HEPARIN [Concomitant]

REACTIONS (1)
  - ANAEMIA [None]
